FAERS Safety Report 4523981-4 (Version None)
Quarter: 2004Q4

REPORT INFORMATION
  Report Type: 
  Country: None (occurrence: None)
  Receive Date: 20041209
  Receipt Date: 20041206
  Transmission Date: 20050328
  Serious: Yes (Hospitalization)
  Sender: FDA-Public Use
  Company Number: 2004US-00411

PATIENT
  Age: 35 Year
  Sex: Female

DRUGS (1)
  1. AMYTAL SODIUM                      (AMOBARBITAL SODIUM) INJECTION [Suspect]
     Indication: SURGERY
     Dosage: 100 MG, SINGLE, INTRA-ARTERIAL
     Route: 013
     Dates: start: 20041203, end: 20041203

REACTIONS (5)
  - ARTERIAL DISORDER [None]
  - HEMIPARESIS [None]
  - HEMIPLEGIA [None]
  - LOCAL REACTION [None]
  - POST PROCEDURAL COMPLICATION [None]
